FAERS Safety Report 9426642 (Version 1)
Quarter: 2013Q3

REPORT INFORMATION
  Report Type: Spontaneous
  Country: US (occurrence: US)
  Receive Date: 20130730
  Receipt Date: 20130730
  Transmission Date: 20140515
  Serious: Yes (Hospitalization, Other)
  Sender: FDA-Public Use
  Company Number: US-SANOFI-AVENTIS-2012SA039851

PATIENT
  Age: 54 Year
  Sex: Female
  Weight: 70.5 kg

DRUGS (10)
  1. AMBIEN [Suspect]
     Indication: INSOMNIA
     Route: 048
     Dates: start: 2008, end: 20120201
  2. AMBIEN [Suspect]
     Indication: INSOMNIA
     Route: 048
     Dates: start: 20111105, end: 20120305
  3. HYDROCODONE BITARTRATE/PARACETAMOL [Suspect]
  4. CLONIDINE [Concomitant]
     Indication: HOT FLUSH
     Dates: start: 2005
  5. LUVOX [Concomitant]
     Indication: OBSESSIVE-COMPULSIVE DISORDER
     Dates: start: 1998
  6. TAMIFLU /GFR/ [Concomitant]
  7. IBUPROFEN [Concomitant]
  8. ALENDRONATE [Concomitant]
  9. MELOXICAM [Concomitant]
  10. BENADRYL /OLD FORM/ [Concomitant]
     Indication: MULTIPLE ALLERGIES

REACTIONS (16)
  - Impaired driving ability [Recovered/Resolved]
  - Somnambulism [Unknown]
  - Lethargy [Unknown]
  - Amnesia [Unknown]
  - Hypertension [Unknown]
  - Palpitations [Unknown]
  - Crying [Unknown]
  - Emotional disorder [Unknown]
  - Blood pressure decreased [Unknown]
  - Decreased appetite [Unknown]
  - Tremor [Unknown]
  - Insomnia [Unknown]
  - Somnambulism [Unknown]
  - Sleep-related eating disorder [Unknown]
  - Sleep talking [Unknown]
  - Malaise [Unknown]
